FAERS Safety Report 5020438-1 (Version None)
Quarter: 2006Q2

REPORT INFORMATION
  Report Type: 
  Country: None (occurrence: None)
  Receive Date: 20060602
  Receipt Date: 20060518
  Transmission Date: 20061013
  Serious: Yes (Other)
  Sender: FDA-Public Use
  Company Number: US017608

PATIENT
  Age: 64 Year
  Sex: Female

DRUGS (4)
  1. FENTANYL TRANSDERMAL SYSTEM [Suspect]
  2. CURACIT [Suspect]
  3. THIOPENTAL SODIUM [Suspect]
  4. VECURONIUM BROMIDE [Suspect]

REACTIONS (1)
  - BRONCHIAL OBSTRUCTION [None]
